FAERS Safety Report 6154448-8 (Version None)
Quarter: 2009Q2

REPORT INFORMATION
  Report Type: 
  Country: None (occurrence: None)
  Receive Date: 20090410
  Receipt Date: 20090410
  Transmission Date: 20091009
  Serious: No
  Sender: FDA-Public Use
  Company Number: None

PATIENT
  Sex: Female
  Weight: 92.5338 kg

DRUGS (1)
  1. CEFEPIME HYDROCHLORIDE [Suspect]
     Indication: CELLULITIS
     Dosage: 2GM Q12HR IV
     Route: 042
     Dates: start: 20090401, end: 20090409

REACTIONS (5)
  - ASTHENIA [None]
  - CONFUSIONAL STATE [None]
  - DYSKINESIA [None]
  - MENTAL STATUS CHANGES [None]
  - TREMOR [None]
